FAERS Safety Report 19797971 (Version 2)
Quarter: 2021Q3

REPORT INFORMATION
  Report Type: Spontaneous
  Country: GB (occurrence: GB)
  Receive Date: 20210907
  Receipt Date: 20210925
  Transmission Date: 20211014
  Serious: Yes (Death, Life-Threatening, Hospitalization, Other)
  Sender: FDA-Public Use
  Company Number: GB-ACCORD-237725

PATIENT
  Age: 42 Year
  Sex: Female

DRUGS (2)
  1. TACROLIMUS. [Suspect]
     Active Substance: TACROLIMUS
     Indication: LIVER TRANSPLANT
  2. DACLIZUMAB [Suspect]
     Active Substance: DACLIZUMAB
     Indication: TRANSPLANT REJECTION

REACTIONS (11)
  - Sepsis [Fatal]
  - Bronchopulmonary aspergillosis [Fatal]
  - Embolism [Fatal]
  - Thyroid gland abscess [Fatal]
  - Nodal arrhythmia [Fatal]
  - Aspergillus infection [Fatal]
  - Lung abscess [Fatal]
  - Brain abscess [Fatal]
  - Myocarditis infectious [Fatal]
  - Renal abscess [Fatal]
  - Mitral valve incompetence [Fatal]
